FAERS Safety Report 5858345-4 (Version None)
Quarter: 2008Q3

REPORT INFORMATION
  Report Type: 
  Country: None (occurrence: None)
  Receive Date: 20080826
  Receipt Date: 20080818
  Transmission Date: 20090109
  Serious: Yes (Hospitalization, Other)
  Sender: FDA-Public Use
  Company Number: PHBS2008FR05425

PATIENT
  Age: 32 Year
  Sex: Male

DRUGS (6)
  1. CLOZAPINE [Suspect]
     Indication: PSYCHOTIC DISORDER
     Dosage: 900 MG / DAY
     Route: 065
     Dates: start: 20010601
  2. CLOZAPINE [Interacting]
     Indication: SCHIZOPHRENIA
     Dosage: 450 MG / DAY
     Route: 065
     Dates: start: 20050901
  3. CLOZAPINE [Interacting]
     Dosage: 400 MG / DAY
     Route: 065
     Dates: start: 20060301
  4. FLUVOXAMINE MALEATE [Interacting]
     Indication: ANTIDEPRESSANT DRUG LEVEL DECREASED
     Dosage: 50 MG / DAY
     Route: 065
     Dates: start: 20050901
  5. FLUVOXAMINE MALEATE [Interacting]
     Dosage: 25 MG / DAY
     Route: 065
     Dates: start: 20051001
  6. FLUVOXAMINE MALEATE [Interacting]
     Dosage: 50 MG / DAY
     Route: 065
     Dates: start: 20060301

REACTIONS (17)
  - ABNORMAL BEHAVIOUR [None]
  - AGGRESSION [None]
  - ANTIPSYCHOTIC DRUG LEVEL BELOW THERAPEUTIC [None]
  - ANTIPSYCHOTIC DRUG LEVEL INCREASED [None]
  - DELUSION [None]
  - DISSOCIATIVE DISORDER [None]
  - DRUG ABUSE [None]
  - DRUG INEFFECTIVE [None]
  - DRUG INTERACTION [None]
  - ELEVATED MOOD [None]
  - HYPOMANIA [None]
  - INSOMNIA [None]
  - LOOSE ASSOCIATIONS [None]
  - MORBID THOUGHTS [None]
  - PSYCHOTIC DISORDER [None]
  - SEDATION [None]
  - TACHYPHRENIA [None]
